FAERS Safety Report 20751237 (Version 1)
Quarter: 2022Q2

REPORT INFORMATION
  Report Type: Spontaneous
  Country: CA (occurrence: CA)
  Receive Date: 20220426
  Receipt Date: 20220426
  Transmission Date: 20220721
  Serious: Yes (Other)
  Sender: FDA-Public Use
  Company Number: CA-GILEAD-2022-0579360

PATIENT
  Age: 60 Year
  Sex: Female

DRUGS (3)
  1. VOSEVI [Suspect]
     Active Substance: SOFOSBUVIR\VELPATASVIR\VOXILAPREVIR
     Indication: Chronic hepatitis C
     Dosage: UNK
     Route: 065
  2. RIBAVIRIN [Suspect]
     Active Substance: RIBAVIRIN
     Indication: Chronic hepatitis C
     Dosage: UNK
     Route: 065
  3. GLECAPREVIR\PIBRENTASVIR [Concomitant]
     Active Substance: GLECAPREVIR\PIBRENTASVIR

REACTIONS (3)
  - Hepatocellular carcinoma [Unknown]
  - Thermal ablation [Unknown]
  - Treatment failure [Unknown]
